FAERS Safety Report 12860624 (Version 2)
Quarter: 2016Q4

REPORT INFORMATION
  Report Type: Spontaneous
  Country: US (occurrence: US)
  Receive Date: 20161019
  Receipt Date: 20161028
  Transmission Date: 20170207
  Serious: No
  Sender: FDA-Public Use
  Company Number: US-BAYER-2016-196995

PATIENT
  Age: 84 Year
  Sex: Female
  Weight: 68.93 kg

DRUGS (6)
  1. MIRALAX [Suspect]
     Active Substance: POLYETHYLENE GLYCOL 3350
     Indication: GASTROINTESTINAL DISORDER
     Dosage: 0.5 DF, QD
     Route: 048
     Dates: start: 201604
  2. MIRALAX [Suspect]
     Active Substance: POLYETHYLENE GLYCOL 3350
     Indication: GASTROINTESTINAL DISORDER
     Dosage: UNK UNK, QD, 2 TEASPOONS
     Route: 048
  3. GLUCOSAMINE HYDROCHLORIDE [Concomitant]
     Active Substance: GLUCOSAMINE HYDROCHLORIDE
     Indication: OSTEOARTHRITIS
  4. MILK OF MAGNESIA ORIGINAL [Suspect]
     Active Substance: MAGNESIUM HYDROXIDE
     Indication: GASTROINTESTINAL DISORDER
     Dosage: 2 TABLESPOON, BIW
     Route: 048
     Dates: start: 2014, end: 20161005
  5. TUMS [CALCIUM CARBONATE,MAGNESIUM CARBONATE] [Concomitant]
     Active Substance: CALCIUM CARBONATE\MAGNESIUM CARBONATE
  6. MIRALAX [Suspect]
     Active Substance: POLYETHYLENE GLYCOL 3350
     Indication: GASTROINTESTINAL DISORDER
     Dosage: 1 DF, QD

REACTIONS (12)
  - Dehydration [Recovered/Resolved]
  - Underdose [Unknown]
  - Product use issue [None]
  - Muscle spasms [Recovered/Resolved]
  - Onychoclasis [Not Recovered/Not Resolved]
  - Dizziness [Recovered/Resolved]
  - Nail disorder [Not Recovered/Not Resolved]
  - Product use issue [Unknown]
  - Pollakiuria [Not Recovered/Not Resolved]
  - Feeling abnormal [Recovered/Resolved]
  - Expired product administered [Unknown]
  - Product use issue [None]

NARRATIVE: CASE EVENT DATE: 201604
